FAERS Safety Report 5323810-5 (Version None)
Quarter: 2007Q2

REPORT INFORMATION
  Report Type: 
  Country: None (occurrence: None)
  Receive Date: 20070514
  Receipt Date: 20070503
  Transmission Date: 20071010
  Serious: Yes (Death, Hospitalization)
  Sender: FDA-Public Use
  Company Number: B0456683A

PATIENT
  Age: 75 Year
  Sex: Female
  Weight: 80 kg

DRUGS (10)
  1. ARIXTRA [Suspect]
     Indication: PHLEBITIS
     Dosage: 7.5MG PER DAY
     Route: 058
     Dates: start: 20070105, end: 20070108
  2. PLAVIX [Suspect]
     Dosage: 75MG PER DAY
     Route: 048
  3. INSULINE [Concomitant]
  4. COTAREG [Concomitant]
     Dosage: 12.5MG PER DAY
     Route: 048
  5. CARDENSIEL [Concomitant]
     Dosage: 2.5MG PER DAY
     Route: 048
  6. LASIX [Concomitant]
  7. KALEORID [Concomitant]
  8. AMLOR [Concomitant]
     Dosage: 5MG PER DAY
     Route: 048
  9. TAHOR [Concomitant]
     Dosage: 40MG PER DAY
     Route: 048
  10. MIXTARD HUMAN 70/30 [Concomitant]
     Dosage: 20IU PER DAY
     Route: 058

REACTIONS (19)
  - ABDOMINAL DISTENSION [None]
  - ABDOMINAL PAIN [None]
  - ANAEMIA [None]
  - ANURIA [None]
  - CARDIAC ARREST [None]
  - CIRCULATORY COLLAPSE [None]
  - DECEREBRATION [None]
  - DIABETES MELLITUS [None]
  - ENCEPHALOPATHY [None]
  - GASTROINTESTINAL HAEMORRHAGE [None]
  - HEMIPLEGIA [None]
  - HEPATIC FAILURE [None]
  - HYPERKALAEMIA [None]
  - HYPERLACTACIDAEMIA [None]
  - INJECTION SITE HAEMATOMA [None]
  - METABOLIC ACIDOSIS [None]
  - MULTI-ORGAN FAILURE [None]
  - MUSCLE HAEMORRHAGE [None]
  - SHOCK HAEMORRHAGIC [None]
